APPROVED DRUG PRODUCT: BACLOFEN
Active Ingredient: BACLOFEN
Strength: 15MG
Dosage Form/Route: TABLET;ORAL
Application: A211659 | Product #004 | TE Code: AB
Applicant: ZYDUS LIFESCIENCES GLOBAL FZE
Approved: Feb 13, 2024 | RLD: No | RS: No | Type: RX